FAERS Safety Report 23098465 (Version 1)
Quarter: 2023Q4

REPORT INFORMATION
  Report Type: Spontaneous
  Country: US (occurrence: US)
  Receive Date: 20231023
  Receipt Date: 20231023
  Transmission Date: 20240109
  Serious: No
  Sender: FDA-Public Use
  Company Number: US-BRISTOL-MYERS SQUIBB COMPANY-2023-151052

PATIENT
  Age: 75 Year
  Sex: Male
  Weight: 87.09 kg

DRUGS (1)
  1. REVLIMID [Suspect]
     Active Substance: LENALIDOMIDE
     Indication: Plasma cell myeloma
     Dosage: DOSE : UNKNOWN;     FREQ : DAILY ON DAYS 1-21 EACH 28 DAY CYCLE
     Route: 048

REACTIONS (2)
  - Peripheral swelling [Unknown]
  - Contrast media allergy [Unknown]
